FAERS Safety Report 9490140 (Version 2)
Quarter: 2013Q3

REPORT INFORMATION
  Report Type: Spontaneous
  Country: SE (occurrence: SE)
  Receive Date: 20130830
  Receipt Date: 20130905
  Transmission Date: 20140515
  Serious: Yes (Other)
  Sender: FDA-Public Use
  Company Number: SE-ROCHE-1268474

PATIENT
  Sex: 0
  Weight: 92.6 kg

DRUGS (4)
  1. ROACTEMRA [Suspect]
     Indication: RHEUMATOID ARTHRITIS
     Route: 065
     Dates: start: 20120627
  2. OMEPRAZOL [Concomitant]
     Route: 065
     Dates: start: 200909
  3. KALCIPOS-D [Concomitant]
     Route: 065
     Dates: start: 200904
  4. ORUDIS [Concomitant]

REACTIONS (1)
  - Poor dental condition [Unknown]
